FAERS Safety Report 21964122 (Version 1)
Quarter: 2023Q1

REPORT INFORMATION
  Report Type: Spontaneous
  Country: US (occurrence: None)
  Receive Date: 20230206
  Receipt Date: 20230206
  Transmission Date: 20230417
  Serious: No
  Sender: FDA-Public Use
  Company Number: None

PATIENT
  Age: 89 Year
  Sex: Male

DRUGS (7)
  1. NINLARO [Suspect]
     Active Substance: IXAZOMIB CITRATE
     Indication: Plasma cell myeloma
     Route: 048
     Dates: start: 20210504
  2. PREGABALIN [Concomitant]
     Active Substance: PREGABALIN
  3. TYLENOL [Concomitant]
     Active Substance: ACETAMINOPHEN
  4. MIDODRINE [Concomitant]
     Active Substance: MIDODRINE
  5. VITAMIN B12 [Concomitant]
     Active Substance: CYANOCOBALAMIN
  6. DEXAMETHASONE [Concomitant]
     Active Substance: DEXAMETHASONE
  7. TRAMADOL [Concomitant]
     Active Substance: TRAMADOL

REACTIONS (1)
  - Diarrhoea [None]
